FAERS Safety Report 7780519-6 (Version None)
Quarter: 2011Q3

REPORT INFORMATION
  Report Type: 
  Country: None (occurrence: None)
  Receive Date: 20110927
  Receipt Date: 20110920
  Transmission Date: 20111222
  Serious: Yes (Hospitalization)
  Sender: FDA-Public Use
  Company Number: US-SANOFI-AVENTIS-2011SA061687

PATIENT
  Age: 67 Year
  Sex: Female

DRUGS (3)
  1. EFUDEX [Suspect]
     Route: 042
     Dates: start: 20110801, end: 20110801
  2. EFUDEX [Suspect]
     Route: 042
     Dates: start: 20110101, end: 20110101
  3. ELOXATIN [Suspect]
     Route: 041
     Dates: start: 20110801, end: 20110801

REACTIONS (5)
  - HEPATITIS ACUTE [None]
  - BLOOD ALKALINE PHOSPHATASE INCREASED [None]
  - JAUNDICE [None]
  - ABDOMINAL PAIN [None]
  - BLOOD BILIRUBIN INCREASED [None]
